FAERS Safety Report 21784231 (Version 7)
Quarter: 2023Q2

REPORT INFORMATION
  Report Type: Spontaneous
  Country: JP (occurrence: JP)
  Receive Date: 20221227
  Receipt Date: 20230407
  Transmission Date: 20230722
  Serious: Yes (Life-Threatening, Other)
  Sender: FDA-Public Use
  Company Number: JP-OTSUKA-2022_055995

PATIENT
  Age: 73 Year
  Sex: Male

DRUGS (4)
  1. REXULTI [Suspect]
     Active Substance: BREXPIPRAZOLE
     Indication: Schizophrenia
     Dosage: UNK
     Route: 048
  2. LEVOMEPROMAZINE [Suspect]
     Active Substance: LEVOMEPROMAZINE
     Indication: Product used for unknown indication
     Dosage: UNK
     Route: 065
  3. RILMAZAFONE HYDROCHLORIDE [Suspect]
     Active Substance: RILMAZAFONE HYDROCHLORIDE
     Indication: Insomnia
     Dosage: UNK
     Route: 065
  4. VALPROATE SODIUM [Concomitant]
     Active Substance: VALPROATE SODIUM
     Indication: Schizophrenia
     Dosage: UNK
     Route: 048

REACTIONS (19)
  - Akathisia [Unknown]
  - Diabetes mellitus [Unknown]
  - Polydipsia [Unknown]
  - Polyuria [Unknown]
  - Aggression [Unknown]
  - Urinary incontinence [Unknown]
  - Postural reflex impairment [Unknown]
  - Thirst [Unknown]
  - Tachycardia [Unknown]
  - Pollakiuria [Unknown]
  - Low density lipoprotein increased [Unknown]
  - Poor quality sleep [Unknown]
  - Fall [Unknown]
  - Pain [Unknown]
  - Hypertension [Unknown]
  - Insomnia [Unknown]
  - Hyperglycaemia [Unknown]
  - Tremor [Unknown]
  - Compulsive shopping [Unknown]
